FAERS Safety Report 9425651 (Version 1)
Quarter: 2013Q3

REPORT INFORMATION
  Report Type: Spontaneous
  Country: KR (occurrence: KR)
  Receive Date: 20130729
  Receipt Date: 20130729
  Transmission Date: 20140515
  Serious: Yes (Hospitalization)
  Sender: FDA-Public Use
  Company Number: KR-MYLANLABS-2013S1016053

PATIENT
  Age: 6 Month
  Sex: Female

DRUGS (3)
  1. VALPROATE [Suspect]
     Indication: CONVULSION
     Dosage: 30 MG/KG/DAY
     Route: 065
  2. DIAZEPAM [Concomitant]
     Indication: CONVULSION
     Dosage: TWICE
     Route: 042
  3. LORAZEPAM [Concomitant]
     Indication: CONVULSION
     Dosage: TWICE
     Route: 042

REACTIONS (2)
  - Hypogammaglobulinaemia [Not Recovered/Not Resolved]
  - Pancytopenia [Recovered/Resolved]
